FAERS Safety Report 13453124 (Version 1)
Quarter: 2017Q2

REPORT INFORMATION
  Report Type: Spontaneous
  Country: PL (occurrence: PL)
  Receive Date: 20170418
  Receipt Date: 20170418
  Transmission Date: 20170830
  Serious: Yes (Other)
  Sender: FDA-Public Use
  Company Number: PL-GILEAD-2017-0265657

PATIENT
  Age: 60 Year
  Sex: Male
  Weight: 97 kg

DRUGS (9)
  1. SIOFOR [Concomitant]
     Active Substance: METFORMIN HYDROCHLORIDE
  2. RITUXIMAB [Concomitant]
     Active Substance: RITUXIMAB
  3. BISEPTOL [Concomitant]
     Active Substance: SULFAMETHOXAZOLE\TRIMETHOPRIM
  4. MILURIT [Concomitant]
     Active Substance: ALLOPURINOL
  5. GLIBETIC                           /00145301/ [Concomitant]
  6. ZYDELIG [Suspect]
     Active Substance: IDELALISIB
     Indication: CYTOGENETIC ABNORMALITY
     Dosage: 100 MG, BID
     Route: 065
     Dates: start: 20170130
  7. HEVIRAN                            /00587301/ [Concomitant]
     Dosage: UNK
     Dates: start: 20160313
  8. ZYDELIG [Suspect]
     Active Substance: IDELALISIB
     Indication: CHRONIC LYMPHOCYTIC LEUKAEMIA
     Dosage: 150 MG, BID
     Route: 065
     Dates: start: 20160913, end: 20170123
  9. LETROX [Concomitant]
     Active Substance: LEVOTHYROXINE SODIUM

REACTIONS (2)
  - Agranulocytosis [Unknown]
  - Neutropenia [Recovered/Resolved]

NARRATIVE: CASE EVENT DATE: 20170123
